FAERS Safety Report 4744938-4 (Version None)
Quarter: 2005Q3

REPORT INFORMATION
  Report Type: 
  Country: None (occurrence: None)
  Receive Date: 20050815
  Receipt Date: 20050802
  Transmission Date: 20060218
  Serious: Yes (Death)
  Sender: FDA-Public Use
  Company Number: GB-MERCK-0508GBR00057

PATIENT
  Age: 88 Year
  Sex: Female

DRUGS (12)
  1. DICLOFENAC [Suspect]
     Indication: ANALGESIC EFFECT
     Route: 065
     Dates: start: 20040101
  2. VIOXX [Suspect]
     Indication: PAIN
     Route: 048
  3. CELECOXIB [Suspect]
     Indication: OSTEOARTHRITIS
     Route: 065
     Dates: start: 20031202, end: 20040116
  4. ASPIRIN [Suspect]
     Indication: ANTICOAGULANT THERAPY
     Route: 065
  5. AMILORIDE HYDROCHLORIDE AND FUROSEMIDE [Concomitant]
     Indication: CARDIOMEGALY
     Route: 065
  6. DIGOXIN [Concomitant]
     Indication: ATRIAL FIBRILLATION
     Route: 065
  7. ETIDRONATE DISODIUM [Concomitant]
     Indication: OSTEITIS DEFORMANS
     Route: 065
  8. ACETAMINOPHEN [Concomitant]
     Indication: ANALGESIC EFFECT
     Route: 065
  9. ALUMINUM HYDROXIDE AND MAGNESIUM TRISILICATE [Concomitant]
     Indication: DYSPEPSIA
     Route: 065
  10. LACTULOSE [Concomitant]
     Indication: CONSTIPATION
     Route: 065
  11. COZAAR [Concomitant]
     Indication: HYPERTENSION
     Route: 048
  12. NIFEDIPINE [Concomitant]
     Indication: HYPERTENSION
     Route: 065

REACTIONS (11)
  - ABDOMINAL PAIN UPPER [None]
  - CHEST PAIN [None]
  - GASTRIC ULCER HAEMORRHAGE [None]
  - GASTROINTESTINAL HAEMORRHAGE [None]
  - MYOCARDIAL ISCHAEMIA [None]
  - OEDEMA PERIPHERAL [None]
  - OESOPHAGITIS [None]
  - PERICARDIAL EFFUSION [None]
  - PROCTITIS [None]
  - PULMONARY EMBOLISM [None]
  - RENAL FAILURE ACUTE [None]
